FAERS Safety Report 8571278-8 (Version None)
Quarter: 2012Q3

REPORT INFORMATION
  Report Type: 
  Country: None (occurrence: None)
  Receive Date: 20120806
  Receipt Date: 20120723
  Transmission Date: 20120928
  Serious: Yes (Hospitalization, Other)
  Sender: FDA-Public Use
  Company Number: BR-SANOFI-AVENTIS-2012SA052487

PATIENT
  Age: 68 Year
  Sex: Male
  Weight: 75 kg

DRUGS (9)
  1. HALDOL [Concomitant]
     Indication: DEPRESSION
     Dosage: STRENGTH: 30 ML
     Route: 048
     Dates: start: 20120201
  2. CITALOPRAM HYDROBROMIDE [Concomitant]
     Indication: DEPRESSION
     Route: 048
     Dates: start: 20120201
  3. ROSUVASTATIN [Concomitant]
     Route: 048
     Dates: start: 20120501
  4. SOLOSTAR [Suspect]
     Indication: DEVICE THERAPY
     Dates: start: 20120601
  5. INSULIN [Concomitant]
  6. ATENOLOL [Suspect]
     Route: 065
  7. LASIX [Concomitant]
     Indication: BLOOD PRESSURE
     Dosage: 3 TABLETS DAILY (STRENGTH: 40 MG)
     Route: 048
     Dates: start: 20100101
  8. LANTUS SOLOSTAR [Suspect]
     Dosage: IN THE MORNING
     Route: 058
     Dates: start: 20120601
  9. OMEPRAZOLE [Concomitant]
     Indication: GASTRIC DISORDER
     Route: 048
     Dates: start: 20110101

REACTIONS (2)
  - HYPERGLYCAEMIA [None]
  - HYPOTENSION [None]
